FAERS Safety Report 21649460 (Version 2)
Quarter: 2023Q1

REPORT INFORMATION
  Report Type: Spontaneous
  Country: HU (occurrence: HU)
  Receive Date: 20221128
  Receipt Date: 20230118
  Transmission Date: 20230417
  Serious: Yes (Other)
  Sender: FDA-Public Use
  Company Number: None

PATIENT
  Age: 79 Year
  Sex: Female
  Weight: 50 kg

DRUGS (24)
  1. CYCLOPHOSPHAMIDE [Suspect]
     Active Substance: CYCLOPHOSPHAMIDE
     Indication: Diffuse large B-cell lymphoma
     Dosage: 6 CYCLES OF R-CHOP THERAPY EVERY 21 DAYS
     Route: 065
     Dates: start: 20061212, end: 20070327
  2. CYCLOPHOSPHAMIDE [Suspect]
     Active Substance: CYCLOPHOSPHAMIDE
     Indication: Cutaneous B-cell lymphoma
     Dosage: 4 CYCLES
     Route: 065
     Dates: start: 200705
  3. CYCLOPHOSPHAMIDE [Suspect]
     Active Substance: CYCLOPHOSPHAMIDE
     Dosage: R-CHOEP
     Route: 065
     Dates: start: 200708
  4. METHYLPREDNISOLONE [Suspect]
     Active Substance: METHYLPREDNISOLONE
     Indication: Diffuse large B-cell lymphoma
     Dosage: 6 CYCLES OF R-CHOP THERAPY EVERY 21 DAYS
     Route: 065
     Dates: start: 20061212, end: 20070327
  5. METHYLPREDNISOLONE [Suspect]
     Active Substance: METHYLPREDNISOLONE
     Indication: Cutaneous B-cell lymphoma
     Dosage: 4 CYCLES
     Route: 065
     Dates: start: 200705
  6. METHYLPREDNISOLONE [Suspect]
     Active Substance: METHYLPREDNISOLONE
     Dosage: R-CHOEP
     Route: 065
     Dates: start: 200708
  7. RITUXIMAB [Suspect]
     Active Substance: RITUXIMAB
     Indication: Diffuse large B-cell lymphoma
     Dosage: 6 CYCLES OF R-CHOP THERAPY EVERY 21 DAYS
     Route: 065
     Dates: start: 20061212, end: 20070327
  8. RITUXIMAB [Suspect]
     Active Substance: RITUXIMAB
     Indication: Cutaneous B-cell lymphoma
     Dosage: 4 CYCLES
     Route: 065
     Dates: start: 200705
  9. RITUXIMAB [Suspect]
     Active Substance: RITUXIMAB
     Dosage: R-CHOEP
     Route: 065
     Dates: start: 200708
  10. ETOPOSIDE [Suspect]
     Active Substance: ETOPOSIDE
     Indication: Diffuse large B-cell lymphoma
     Dosage: R-CHOEP
     Route: 065
     Dates: start: 200708
  11. ETOPOSIDE [Suspect]
     Active Substance: ETOPOSIDE
     Indication: Cutaneous B-cell lymphoma
  12. VINCRISTINE [Suspect]
     Active Substance: VINCRISTINE
     Indication: Diffuse large B-cell lymphoma
     Dosage: 6 CYCLES OF R-CHOP THERAPY EVERY 21 DAYS
     Route: 065
     Dates: start: 20061212, end: 20070327
  13. VINCRISTINE [Suspect]
     Active Substance: VINCRISTINE
     Indication: Cutaneous B-cell lymphoma
     Dosage: 4 CYCLES
     Route: 065
     Dates: start: 200705
  14. VINCRISTINE [Suspect]
     Active Substance: VINCRISTINE
     Dosage: R-CHOEP
     Route: 065
     Dates: start: 200708
  15. EPIRUBICIN [Suspect]
     Active Substance: EPIRUBICIN
     Indication: Diffuse large B-cell lymphoma
     Dosage: 6 CYCLES OF R-CHOP THERAPY EVERY 21 DAYS
     Route: 065
     Dates: start: 20061212, end: 20070327
  16. EPIRUBICIN [Suspect]
     Active Substance: EPIRUBICIN
     Indication: Cutaneous B-cell lymphoma
     Dosage: 4 CYCLES
     Route: 065
     Dates: start: 200705
  17. EPIRUBICIN [Suspect]
     Active Substance: EPIRUBICIN
     Dosage: R-CHOEP
     Route: 065
     Dates: start: 200708
  18. OMEPRAZOLE [Concomitant]
     Active Substance: OMEPRAZOLE
     Route: 065
  19. Dormicum [Concomitant]
     Route: 065
  20. TRITACE HCT [Concomitant]
     Dosage: 5/25
     Route: 065
  21. BETAXOLOL HYDROCHLORIDE [Concomitant]
     Active Substance: BETAXOLOL HYDROCHLORIDE
     Route: 065
  22. Amlipin [Concomitant]
     Route: 065
  23. Algopyrin [Concomitant]
     Route: 065
  24. SULFAMETHOXAZOLE\TRIMETHOPRIM [Concomitant]
     Active Substance: SULFAMETHOXAZOLE\TRIMETHOPRIM
     Indication: Klebsiella infection
     Dosage: UNK
     Route: 065

REACTIONS (5)
  - Bone marrow failure [Recovered/Resolved]
  - Pancytopenia [Unknown]
  - Anaemia [Unknown]
  - Nausea [Unknown]
  - Pyrexia [Recovered/Resolved]
